FAERS Safety Report 24813289 (Version 3)
Quarter: 2025Q2

REPORT INFORMATION
  Report Type: Spontaneous
  Country: CA (occurrence: CA)
  Receive Date: 20250107
  Receipt Date: 20250626
  Transmission Date: 20250717
  Serious: Yes (Life-Threatening, Hospitalization, Disabling, Other)
  Sender: BRISTOL-MYERS SQUIBB COMPANY
  Company Number: CA-BRISTOL-MYERS SQUIBB COMPANY-2024-197498

PATIENT
  Age: 43 Year
  Sex: Female
  Weight: 96 kg

DRUGS (99)
  1. TRIAMCINOLONE ACETONIDE [Suspect]
     Active Substance: TRIAMCINOLONE ACETONIDE
     Indication: Rheumatoid arthritis
     Route: 014
  2. AIMOVIG [Concomitant]
     Active Substance: ERENUMAB-AOOE
     Indication: Migraine
  3. AIMOVIG [Concomitant]
     Active Substance: ERENUMAB-AOOE
  4. AIMOVIG [Concomitant]
     Active Substance: ERENUMAB-AOOE
  5. ALENDRONIC ACID [Concomitant]
     Active Substance: ALENDRONIC ACID
     Indication: Rheumatoid arthritis
     Route: 048
  6. CETIRIZINE [Concomitant]
     Active Substance: CETIRIZINE HYDROCHLORIDE
     Indication: Rheumatoid arthritis
     Route: 048
  7. CETIRIZINE [Concomitant]
     Active Substance: CETIRIZINE HYDROCHLORIDE
     Indication: Off label use
     Route: 048
  8. CETIRIZINE [Concomitant]
     Active Substance: CETIRIZINE HYDROCHLORIDE
  9. COSENTYX [Concomitant]
     Active Substance: SECUKINUMAB
     Indication: Rheumatoid arthritis
  10. COSENTYX [Concomitant]
     Active Substance: SECUKINUMAB
     Indication: Psoriatic arthropathy
  11. COSENTYX [Concomitant]
     Active Substance: SECUKINUMAB
     Route: 005
  12. ERELZI [Concomitant]
     Active Substance: ETANERCEPT-SZZS
     Indication: Rheumatoid arthritis
     Route: 058
  13. LISINOPRIL [Concomitant]
     Active Substance: LISINOPRIL
     Indication: Product used for unknown indication
  14. LORAZEPAM [Concomitant]
     Active Substance: LORAZEPAM
     Indication: Product used for unknown indication
  15. METHOTREXATE [Concomitant]
     Active Substance: METHOTREXATE
     Indication: Rheumatoid arthritis
     Route: 048
  16. METHOTREXATE [Concomitant]
     Active Substance: METHOTREXATE
     Route: 048
  17. METHOTREXATE [Concomitant]
     Active Substance: METHOTREXATE
     Route: 048
  18. METHOTREXATE [Concomitant]
     Active Substance: METHOTREXATE
     Route: 048
  19. METHOTREXATE [Concomitant]
     Active Substance: METHOTREXATE
     Route: 048
  20. METHOTREXATE [Concomitant]
     Active Substance: METHOTREXATE
  21. METHOTREXATE [Concomitant]
     Active Substance: METHOTREXATE
     Route: 048
  22. METHOTREXATE [Concomitant]
     Active Substance: METHOTREXATE
     Route: 048
  23. METHOTREXATE [Concomitant]
     Active Substance: METHOTREXATE
     Route: 048
  24. METHOTREXATE [Concomitant]
     Active Substance: METHOTREXATE
     Route: 048
  25. METHOTREXATE [Concomitant]
     Active Substance: METHOTREXATE
     Route: 048
  26. METHOTREXATE [Concomitant]
     Active Substance: METHOTREXATE
     Route: 048
  27. METHOTREXATE [Concomitant]
     Active Substance: METHOTREXATE
  28. METHOTREXATE [Concomitant]
     Active Substance: METHOTREXATE
     Route: 048
  29. OXYCODONE TEREPHTHALATE [Concomitant]
     Active Substance: OXYCODONE TEREPHTHALATE
     Indication: Product used for unknown indication
  30. PANTOPRAZOLE [Concomitant]
     Active Substance: PANTOPRAZOLE
     Indication: Product used for unknown indication
  31. PHTHALYLSULFATHIAZOLE [Concomitant]
     Active Substance: PHTHALYLSULFATHIAZOLE
     Indication: Rheumatoid arthritis
     Route: 048
  32. PHTHALYLSULFATHIAZOLE [Concomitant]
     Active Substance: PHTHALYLSULFATHIAZOLE
     Route: 048
  33. PHTHALYLSULFATHIAZOLE [Concomitant]
     Active Substance: PHTHALYLSULFATHIAZOLE
  34. PHTHALYLSULFATHIAZOLE [Concomitant]
     Active Substance: PHTHALYLSULFATHIAZOLE
     Route: 048
  35. PHTHALYLSULFATHIAZOLE [Concomitant]
     Active Substance: PHTHALYLSULFATHIAZOLE
     Route: 058
  36. PREDNISONE [Concomitant]
     Active Substance: PREDNISONE
     Indication: Rheumatoid arthritis
     Route: 048
  37. PSEUDOEPHEDRINE [Concomitant]
     Active Substance: PSEUDOEPHEDRINE
     Indication: Rheumatoid arthritis
  38. PSEUDOEPHEDRINE [Concomitant]
     Active Substance: PSEUDOEPHEDRINE
  39. PSEUDOEPHEDRINE [Concomitant]
     Active Substance: PSEUDOEPHEDRINE
  40. QUETIAPINE FUMARATE [Concomitant]
     Active Substance: QUETIAPINE FUMARATE
     Indication: Product used for unknown indication
  41. RAMIPRIL [Concomitant]
     Active Substance: RAMIPRIL
     Indication: Rheumatoid arthritis
     Route: 016
  42. RANITIDINE [Concomitant]
     Active Substance: RANITIDINE
     Indication: Rheumatoid arthritis
  43. REMICADE [Concomitant]
     Active Substance: INFLIXIMAB
     Indication: Rheumatoid arthritis
     Route: 040
  44. REMICADE [Concomitant]
     Active Substance: INFLIXIMAB
     Route: 042
  45. RISEDRONATE SODIUM [Concomitant]
     Active Substance: RISEDRONATE SODIUM
     Indication: Product used for unknown indication
  46. RITUXIMAB [Concomitant]
     Active Substance: RITUXIMAB
     Indication: Rheumatoid arthritis
  47. RITUXIMAB [Concomitant]
     Active Substance: RITUXIMAB
     Route: 040
  48. RITUXIMAB [Concomitant]
     Active Substance: RITUXIMAB
     Route: 042
  49. DIETARY SUPPLEMENT\HERBALS [Concomitant]
     Active Substance: DIETARY SUPPLEMENT\HERBALS
     Indication: Product used for unknown indication
  50. FISH OIL [Concomitant]
     Active Substance: FISH OIL
     Indication: Product used for unknown indication
  51. SIMPONI [Concomitant]
     Active Substance: GOLIMUMAB
     Indication: Rheumatoid arthritis
  52. SIMPONI [Concomitant]
     Active Substance: GOLIMUMAB
     Indication: Prostatic specific antigen
     Route: 058
  53. GOLD SODIUM THIOMALATE [Concomitant]
     Active Substance: GOLD SODIUM THIOMALATE
     Indication: Product used for unknown indication
     Route: 030
  54. GOLD SODIUM THIOMALATE [Concomitant]
     Active Substance: GOLD SODIUM THIOMALATE
     Route: 030
  55. SULFASALAZINE [Concomitant]
     Active Substance: SULFASALAZINE
     Indication: Rheumatoid arthritis
     Route: 058
  56. SULFASALAZINE [Concomitant]
     Active Substance: SULFASALAZINE
     Route: 048
  57. SULFASALAZINE [Concomitant]
     Active Substance: SULFASALAZINE
     Route: 048
  58. SULFASALAZINE [Concomitant]
     Active Substance: SULFASALAZINE
     Route: 058
  59. SULFASALAZINE [Concomitant]
     Active Substance: SULFASALAZINE
  60. SULFASALAZINE [Concomitant]
     Active Substance: SULFASALAZINE
     Route: 048
  61. SULFASALAZINE [Concomitant]
     Active Substance: SULFASALAZINE
     Route: 058
  62. SULFASALAZINE [Concomitant]
     Active Substance: SULFASALAZINE
     Route: 048
  63. SULFASALAZINE [Concomitant]
     Active Substance: SULFASALAZINE
     Route: 048
  64. SULFASALAZINE [Concomitant]
     Active Substance: SULFASALAZINE
  65. SULFASALAZINE [Concomitant]
     Active Substance: SULFASALAZINE
     Route: 058
  66. SULFASALAZINE [Concomitant]
     Active Substance: SULFASALAZINE
     Route: 048
  67. SULFASALAZINE [Concomitant]
     Active Substance: SULFASALAZINE
     Route: 058
  68. SULFASALAZINE [Concomitant]
     Active Substance: SULFASALAZINE
  69. SULFASALAZINE [Concomitant]
     Active Substance: SULFASALAZINE
     Route: 048
  70. SULFASALAZINE [Concomitant]
     Active Substance: SULFASALAZINE
     Route: 048
  71. SULFASALAZINE [Concomitant]
     Active Substance: SULFASALAZINE
     Route: 058
  72. SULFASALAZINE [Concomitant]
     Active Substance: SULFASALAZINE
     Route: 048
  73. SULFASALAZINE [Concomitant]
     Active Substance: SULFASALAZINE
     Route: 048
  74. SULFASALAZINE [Concomitant]
     Active Substance: SULFASALAZINE
     Route: 048
  75. SULFASALAZINE [Concomitant]
     Active Substance: SULFASALAZINE
     Route: 058
  76. SULFASALAZINE [Concomitant]
     Active Substance: SULFASALAZINE
     Route: 058
  77. SULFASALAZINE [Concomitant]
     Active Substance: SULFASALAZINE
     Route: 048
  78. SULFASALAZINE [Concomitant]
     Active Substance: SULFASALAZINE
  79. SULFATHIAZOLE [Concomitant]
     Active Substance: SULFATHIAZOLE
     Indication: Product used for unknown indication
  80. TOFACITINIB [Concomitant]
     Active Substance: TOFACITINIB
     Indication: Rheumatoid arthritis
  81. TOFACITINIB [Concomitant]
     Active Substance: TOFACITINIB
  82. TOPAMAX [Concomitant]
     Active Substance: TOPIRAMATE
     Indication: Migraine
     Route: 048
  83. TOPAMAX [Concomitant]
     Active Substance: TOPIRAMATE
  84. TOPAMAX [Concomitant]
     Active Substance: TOPIRAMATE
  85. TRAMADOL HYDROCHLORIDE [Concomitant]
     Active Substance: TRAMADOL HYDROCHLORIDE
     Indication: Product used for unknown indication
  86. VITAMIN C [Concomitant]
     Active Substance: ASCORBIC ACID
     Indication: Product used for unknown indication
  87. DICLOFENAC [Concomitant]
     Active Substance: DICLOFENAC
     Indication: Product used for unknown indication
  88. DICLOFENAC [Concomitant]
     Active Substance: DICLOFENAC
  89. XELJANZ [Concomitant]
     Active Substance: TOFACITINIB CITRATE
     Indication: Rheumatoid arthritis
  90. CETIRIZINE HYDROCHLORIDE [Concomitant]
     Active Substance: CETIRIZINE HYDROCHLORIDE
     Indication: Rheumatoid arthritis
     Route: 048
  91. CETIRIZINE HYDROCHLORIDE [Concomitant]
     Active Substance: CETIRIZINE HYDROCHLORIDE
  92. CETIRIZINE HYDROCHLORIDE [Concomitant]
     Active Substance: CETIRIZINE HYDROCHLORIDE
     Route: 048
  93. PANTOPRAZOLE SODIUM [Concomitant]
     Active Substance: PANTOPRAZOLE SODIUM
     Indication: Product used for unknown indication
  94. RANITIDINE HYDROCHLORIDE [Concomitant]
     Active Substance: RANITIDINE HYDROCHLORIDE
     Indication: Rheumatoid arthritis
  95. TOPIRAMATE [Concomitant]
     Active Substance: TOPIRAMATE
     Indication: Migraine
  96. TOPIRAMATE [Concomitant]
     Active Substance: TOPIRAMATE
  97. TOPIRAMATE [Concomitant]
     Active Substance: TOPIRAMATE
     Route: 048
  98. DICLOFENAC DIETHYLAMINE [Concomitant]
     Active Substance: DICLOFENAC DIETHYLAMINE
     Indication: Product used for unknown indication
  99. STELARA [Concomitant]
     Active Substance: USTEKINUMAB
     Indication: Product used for unknown indication
     Route: 058

REACTIONS (30)
  - Musculoskeletal pain [Unknown]
  - Nail disorder [Unknown]
  - Nasopharyngitis [Unknown]
  - Night sweats [Unknown]
  - Obesity [Unknown]
  - Osteoarthritis [Unknown]
  - Pain [Unknown]
  - Paraesthesia [Unknown]
  - Pemphigus [Unknown]
  - Pericarditis [Unknown]
  - Peripheral swelling [Unknown]
  - Peripheral venous disease [Unknown]
  - Product quality issue [Unknown]
  - Psoriatic arthropathy [Unknown]
  - Rash [Unknown]
  - Rheumatoid arthritis [Unknown]
  - Stomatitis [Unknown]
  - Swelling [Unknown]
  - Synovitis [Unknown]
  - Systemic lupus erythematosus [Unknown]
  - Taste disorder [Unknown]
  - Type 2 diabetes mellitus [Unknown]
  - Urticaria [Unknown]
  - Vomiting [Unknown]
  - Weight increased [Unknown]
  - Wheezing [Unknown]
  - Wound [Unknown]
  - Wound infection [Unknown]
  - Adverse event [Unknown]
  - Hospitalisation [Unknown]
